FAERS Safety Report 4526925-4 (Version None)
Quarter: 2004Q4

REPORT INFORMATION
  Report Type: 
  Country: None (occurrence: None)
  Receive Date: 20041105
  Receipt Date: 20040914
  Transmission Date: 20050328
  Serious: No
  Sender: FDA-Public Use
  Company Number: 2004USFACT00021

PATIENT
  Age: 50 Year
  Sex: Male

DRUGS (1)
  1. FACTIVE [Suspect]
     Indication: RESPIRATORY TRACT INFECTION BACTERIAL
     Dates: start: 20040910, end: 20040910

REACTIONS (2)
  - PANIC ATTACK [None]
  - URTICARIA [None]
